FAERS Safety Report 14651176 (Version 6)
Quarter: 2021Q4

REPORT INFORMATION
  Report Type: Report from Study
  Country: FR (occurrence: FR)
  Receive Date: 20180316
  Receipt Date: 20211028
  Transmission Date: 20220303
  Serious: Yes (Death, Hospitalization, Other)
  Sender: FDA-Public Use
  Company Number: FR-GILEAD-2018-0317568AA

PATIENT
  Age: 73 Year
  Sex: Male

DRUGS (11)
  1. IDELALISIB [Suspect]
     Active Substance: IDELALISIB
     Indication: Waldenstrom^s macroglobulinaemia
     Dosage: 300 MG, QD
     Route: 048
     Dates: start: 20170321, end: 20170516
  2. IDELALISIB [Suspect]
     Active Substance: IDELALISIB
     Dosage: 300 MG, QD
     Route: 048
     Dates: start: 20170613, end: 20171219
  3. OBINUTUZUMAB [Suspect]
     Active Substance: OBINUTUZUMAB
     Indication: Waldenstrom^s macroglobulinaemia
     Dosage: 1000 MG, EVERY 1 CYCLE D1C1
     Route: 041
     Dates: start: 20170321
  4. OBINUTUZUMAB [Suspect]
     Active Substance: OBINUTUZUMAB
     Dosage: 1000 MG, EVERY 1 CYCLE, D8C1
     Route: 041
     Dates: start: 20170328, end: 20170328
  5. OBINUTUZUMAB [Suspect]
     Active Substance: OBINUTUZUMAB
     Dosage: 1000 MG, EVERY 1 CYCLE, D15C1
     Route: 041
     Dates: start: 20170404, end: 20170404
  6. OBINUTUZUMAB [Suspect]
     Active Substance: OBINUTUZUMAB
     Dosage: 1000 MG, EVERY 1 CYCLE D1C2
     Route: 041
     Dates: start: 20170418, end: 20170418
  7. OBINUTUZUMAB [Suspect]
     Active Substance: OBINUTUZUMAB
     Dosage: 1000 MG, EVERY 1 CYCLE D1C3
     Route: 041
     Dates: start: 20170516, end: 20180516
  8. OBINUTUZUMAB [Suspect]
     Active Substance: OBINUTUZUMAB
     Dosage: 1000 MG, EVERY 1 CYCLE D1C4
     Route: 041
     Dates: start: 20170613, end: 20170613
  9. OBINUTUZUMAB [Suspect]
     Active Substance: OBINUTUZUMAB
     Dosage: 1000 MG, EVERY 1 CYCLE D1C5
     Route: 041
     Dates: start: 20170711, end: 20170711
  10. OBINUTUZUMAB [Suspect]
     Active Substance: OBINUTUZUMAB
     Dosage: 1000 MG, EVERY 1 CYCLE D1C6
     Route: 041
     Dates: start: 20170808, end: 20170808
  11. VALGANCICLOVIR [Concomitant]
     Active Substance: VALGANCICLOVIR
     Route: 065

REACTIONS (3)
  - Septic shock [Fatal]
  - Acute coronary syndrome [Recovered/Resolved]
  - Pneumonia [Fatal]

NARRATIVE: CASE EVENT DATE: 20171219
